FAERS Safety Report 4290630-2 (Version None)
Quarter: 2004Q1

REPORT INFORMATION
  Report Type: 
  Country: None (occurrence: None)
  Receive Date: 20040209
  Receipt Date: 20040128
  Transmission Date: 20041129
  Serious: Yes (Life-Threatening, Hospitalization)
  Sender: FDA-Public Use
  Company Number: A-CH2004-04279

PATIENT
  Age: 41 Year
  Sex: Female
  Weight: 53 kg

DRUGS (7)
  1. TRACLEER [Suspect]
     Indication: PULMONARY HYPERTENSION
     Dosage: 62.5 MG, BID,ORAL
     Route: 048
     Dates: start: 20031107, end: 20031121
  2. TRACLEER [Suspect]
     Indication: PULMONARY HYPERTENSION
     Dosage: 62.5 MG, BID,ORAL
     Route: 048
     Dates: start: 20031201
  3. LASIX [Concomitant]
  4. FRAXODI [Concomitant]
  5. BACTRIM [Concomitant]
  6. SUSTIVA [Concomitant]
  7. KALETRA [Concomitant]

REACTIONS (6)
  - HEPATIC CONGESTION [None]
  - HEPATOMEGALY [None]
  - NODAL ARRHYTHMIA [None]
  - OLIGURIA [None]
  - PALPITATIONS [None]
  - RIGHT VENTRICULAR FAILURE [None]
